FAERS Safety Report 19381307 (Version 1)
Quarter: 2021Q2

REPORT INFORMATION
  Report Type: Spontaneous
  Country: US (occurrence: US)
  Receive Date: 20210607
  Receipt Date: 20210607
  Transmission Date: 20210717
  Serious: Yes (Hospitalization, Other)
  Sender: FDA-Public Use
  Company Number: US-AUROBINDO-AUR-APL-2015-11983

PATIENT
  Age: 80 Year
  Sex: Male

DRUGS (7)
  1. ALPRAZOLAM. [Concomitant]
     Active Substance: ALPRAZOLAM
     Indication: PRODUCT USED FOR UNKNOWN INDICATION
     Dosage: UNK
     Route: 065
  2. OMEPRAZOLE. [Concomitant]
     Active Substance: OMEPRAZOLE
     Indication: PRODUCT USED FOR UNKNOWN INDICATION
     Dosage: UNK
     Route: 065
  3. BENZONATATE. [Concomitant]
     Active Substance: BENZONATATE
     Indication: PRODUCT USED FOR UNKNOWN INDICATION
     Dosage: UNK
     Route: 065
  4. ERTAPENEM. [Interacting]
     Active Substance: ERTAPENEM SODIUM
     Indication: ESCHERICHIA URINARY TRACT INFECTION
     Dosage: 1000 MILLIGRAM
     Route: 042
  5. DIVALPROEX SODIUM EXTENDED?RELEASE TABLETS USP [Suspect]
     Active Substance: DIVALPROEX SODIUM
     Indication: BIPOLAR DISORDER
     Dosage: 750 MG, TWO TIMES A DAY
     Route: 065
  6. HYDROMORPHONE [Concomitant]
     Active Substance: HYDROMORPHONE
     Indication: PRODUCT USED FOR UNKNOWN INDICATION
     Dosage: UNK
     Route: 065
  7. DIVALPROEX SODIUM EXTENDED?RELEASE TABLETS USP [Interacting]
     Active Substance: DIVALPROEX SODIUM
     Dosage: 500 MG, TWO TIMES A DAY
     Route: 065

REACTIONS (9)
  - Dysuria [Unknown]
  - Irritability [Recovered/Resolved]
  - Lethargy [Recovered/Resolved]
  - Mania [Recovered/Resolved]
  - Sleep disorder [Recovered/Resolved]
  - Pressure of speech [Recovered/Resolved]
  - Thrombocytopenia [Recovered/Resolved]
  - Drug level decreased [Recovered/Resolved]
  - Drug interaction [Recovered/Resolved]
